FAERS Safety Report 8381179-6 (Version None)
Quarter: 2012Q2

REPORT INFORMATION
  Report Type: 
  Country: None (occurrence: None)
  Receive Date: 20120522
  Receipt Date: 20111123
  Transmission Date: 20120825
  Serious: Yes (Other)
  Sender: FDA-Public Use
  Company Number: 2011-07512

PATIENT
  Age: 90 Year
  Sex: Female

DRUGS (6)
  1. THERACYS [Suspect]
     Indication: BLADDER CANCER
     Dates: start: 20110615, end: 20110615
  2. HYDROCHLOROTHIAZIDE [Concomitant]
  3. LISIMOPRIL [Concomitant]
  4. INTERFERON [Suspect]
     Dosage: IV, BLADDER
     Route: 042
     Dates: start: 20110615, end: 20110615
  5. PROCID [Concomitant]
  6. NEPROSOL [Concomitant]

REACTIONS (5)
  - INCORRECT DOSE ADMINISTERED [None]
  - CULTURE URINE POSITIVE [None]
  - BLADDER PAIN [None]
  - BODY TEMPERATURE INCREASED [None]
  - URINE ABNORMALITY [None]
